FAERS Safety Report 12907989 (Version 1)
Quarter: 2016Q4

REPORT INFORMATION
  Report Type: Spontaneous
  Country: SI (occurrence: SI)
  Receive Date: 20161103
  Receipt Date: 20161103
  Transmission Date: 20170207
  Serious: Yes (Life-Threatening, Hospitalization, Disabling)
  Sender: FDA-Public Use
  Company Number: SI-TEVA-706501ISR

PATIENT
  Age: 79 Year
  Sex: Female

DRUGS (2)
  1. DOXORUBICIN EBEWE 2 MG/ML [Suspect]
     Active Substance: DOXORUBICIN
     Indication: NON-HODGKIN^S LYMPHOMA
     Route: 041
     Dates: start: 201603, end: 201609
  2. VINCRISTINE PHARMACHEMIE [Suspect]
     Active Substance: VINCRISTINE
     Indication: NON-HODGKIN^S LYMPHOMA
     Dosage: 1G/ML
     Route: 041
     Dates: start: 201603, end: 201609

REACTIONS (2)
  - Cytotoxic cardiomyopathy [Not Recovered/Not Resolved]
  - Cardiac failure [Not Recovered/Not Resolved]
